FAERS Safety Report 24089427 (Version 1)
Quarter: 2024Q3

REPORT INFORMATION
  Report Type: Spontaneous
  Country: CA (occurrence: CA)
  Receive Date: 20240715
  Receipt Date: 20240715
  Transmission Date: 20241017
  Serious: Yes (Other)
  Sender: UCB
  Company Number: CA-UCBSA-2024035588

PATIENT
  Age: 6 Month
  Sex: Male

DRUGS (3)
  1. LEVETIRACETAM [Suspect]
     Active Substance: LEVETIRACETAM
     Indication: Infantile spasms
     Dosage: UNK
  2. LEVETIRACETAM [Suspect]
     Active Substance: LEVETIRACETAM
     Indication: Off label use
  3. TOPIRAMATE [Suspect]
     Active Substance: TOPIRAMATE
     Indication: Infantile spasms
     Dosage: UNK

REACTIONS (2)
  - Off label use [Unknown]
  - Therapy non-responder [Unknown]
